FAERS Safety Report 9954212 (Version 1)
Quarter: 2014Q1

REPORT INFORMATION
  Report Type: Spontaneous
  Country: US (occurrence: US)
  Receive Date: 20140304
  Receipt Date: 20140304
  Transmission Date: 20141002
  Serious: No
  Sender: FDA-Public Use
  Company Number: US-AMGEN-USASP2013085274

PATIENT
  Age: 37 Year
  Sex: Female
  Weight: 59.86 kg

DRUGS (9)
  1. ENBREL [Suspect]
     Indication: POLYCHONDRITIS
     Dosage: 50 MG, 2 TIMES/WK
     Route: 058
     Dates: start: 2008
  2. ORTHO TRI-CYCLEN LO [Concomitant]
     Dosage: UNK
  3. BROMFED DM [Concomitant]
     Dosage: UNK
  4. CEFDINIR [Concomitant]
     Dosage: UNK
  5. HYDROCODONE/APAP [Concomitant]
     Dosage: UNK
  6. AMITIZA [Concomitant]
     Dosage: UNK
  7. LORAZEPAM [Concomitant]
     Dosage: UNK
  8. QUETIAPINE FUMARATE [Concomitant]
     Dosage: UNK
  9. PREDNISONE [Concomitant]
     Indication: POLYCHONDRITIS
     Dosage: UNK
     Route: 048

REACTIONS (2)
  - Viral infection [Recovered/Resolved]
  - Gingivitis [Unknown]
